FAERS Safety Report 7996531-8 (Version None)
Quarter: 2011Q4

REPORT INFORMATION
  Report Type: 
  Country: None (occurrence: None)
  Receive Date: 20111221
  Receipt Date: 20111213
  Transmission Date: 20120403
  Serious: Yes (Hospitalization)
  Sender: FDA-Public Use
  Company Number: US-AMGEN-USASP2011066478

PATIENT
  Age: 53 Year
  Sex: Female

DRUGS (1)
  1. ENBREL [Suspect]
     Indication: RHEUMATOID ARTHRITIS
     Dosage: 50 MG, Q2WK
     Dates: start: 20000223

REACTIONS (17)
  - PULMONARY FIBROSIS [None]
  - GAIT DISTURBANCE [None]
  - OSTEOMALACIA [None]
  - BURSITIS [None]
  - TRIGGER FINGER [None]
  - SPINAL OSTEOARTHRITIS [None]
  - EXOSTOSIS [None]
  - FALL [None]
  - BACK PAIN [None]
  - DYSPHAGIA [None]
  - INTERVERTEBRAL DISC PROTRUSION [None]
  - RHEUMATOID ARTHRITIS [None]
  - HYPERSENSITIVITY [None]
  - ADENOIDAL DISORDER [None]
  - INTERVERTEBRAL DISC COMPRESSION [None]
  - COUGH [None]
  - SINUSITIS [None]
